FAERS Safety Report 23177915 (Version 3)
Quarter: 2023Q4

REPORT INFORMATION
  Report Type: Spontaneous
  Country: UY (occurrence: UY)
  Receive Date: 20231113
  Receipt Date: 20231123
  Transmission Date: 20240110
  Serious: Yes (Other)
  Sender: FDA-Public Use
  Company Number: UY-009507513-2311URY003812

PATIENT
  Age: 56 Year
  Sex: Female

DRUGS (5)
  1. TEMOZOLOMIDE [Suspect]
     Active Substance: TEMOZOLOMIDE
     Indication: Glioblastoma
     Dosage: UNK
     Route: 048
     Dates: start: 2021, end: 202112
  2. BEVACIZUMAB [Suspect]
     Active Substance: BEVACIZUMAB
     Indication: Glioblastoma
     Dosage: 10 MILLIGRAM/KILOGRAM, 760 MG,  EVERY 2 WEEKS INTRAVENOUSLY
     Route: 042
     Dates: start: 202208, end: 202303
  3. BEVACIZUMAB [Suspect]
     Active Substance: BEVACIZUMAB
     Dosage: EVERY 21 DAYS
     Route: 042
     Dates: start: 2023
  4. LOMUSTINE [Suspect]
     Active Substance: LOMUSTINE
     Indication: Glioblastoma
     Dosage: 90 MILLIGRAM/SQ. METER, 160 MG , EVERY 6 WEEKS ORALLY
     Route: 048
     Dates: start: 202208, end: 202303
  5. LOMUSTINE [Suspect]
     Active Substance: LOMUSTINE
     Dosage: UNK
     Route: 048
     Dates: start: 2023

REACTIONS (5)
  - Recurrent cancer [Not Recovered/Not Resolved]
  - Glioblastoma [Not Recovered/Not Resolved]
  - Hepatotoxicity [Unknown]
  - Hepatitis [Recovering/Resolving]
  - Cholestasis [Unknown]

NARRATIVE: CASE EVENT DATE: 20220201
